FAERS Safety Report 18340249 (Version 1)
Quarter: 2020Q4

REPORT INFORMATION
  Report Type: Spontaneous
  Country: FR (occurrence: FR)
  Receive Date: 20201002
  Receipt Date: 20201002
  Transmission Date: 20210113
  Serious: Yes (Hospitalization)
  Sender: FDA-Public Use
  Company Number: FR-TEVA-2020-FR-1833358

PATIENT
  Age: 12 Year
  Sex: Male
  Weight: 55 kg

DRUGS (5)
  1. KIDROLASE 10 000 U.I., POUDRE ET SOLVANT POUR SOLUTION INJECTABLE [Suspect]
     Active Substance: ASPARAGINASE
     Indication: ACUTE LYMPHOCYTIC LEUKAEMIA
     Dosage: UNIT DOSE 10000IU
     Route: 042
     Dates: start: 20200703, end: 20200724
  2. VINCRISTINE (SULFATE DE) [Suspect]
     Active Substance: VINCRISTINE SULFATE
     Indication: ACUTE LYMPHOCYTIC LEUKAEMIA
     Dosage: UNIT DOSE 2MG
     Route: 042
     Dates: start: 20200630, end: 20200721
  3. METHOTREXATE. [Suspect]
     Active Substance: METHOTREXATE
     Indication: ACUTE LYMPHOCYTIC LEUKAEMIA
     Dosage: UNIT DOSE 12MG
     Route: 037
     Dates: start: 20200703
  4. CYTARABINE. [Suspect]
     Active Substance: CYTARABINE
     Indication: ACUTE LYMPHOCYTIC LEUKAEMIA
     Dosage: UNIT DOSE 30MG
     Route: 037
     Dates: start: 20200703, end: 20200717
  5. CERUBIDINE [Suspect]
     Active Substance: DAUNORUBICIN HYDROCHLORIDE
     Indication: ACUTE LYMPHOCYTIC LEUKAEMIA
     Dosage: UNIT DOSE 49.5MG
     Route: 042
     Dates: start: 20200630, end: 20200721

REACTIONS (3)
  - Hyperammonaemia [Recovered/Resolved]
  - Hepatocellular injury [Recovered/Resolved]
  - Jaundice cholestatic [Recovered/Resolved]

NARRATIVE: CASE EVENT DATE: 20200721
